FAERS Safety Report 21944258 (Version 1)
Quarter: 2023Q1

REPORT INFORMATION
  Report Type: Spontaneous
  Country: US (occurrence: US)
  Receive Date: 20230202
  Receipt Date: 20230202
  Transmission Date: 20230418
  Serious: No
  Sender: FDA-Public Use
  Company Number: US-BAYER-2023A012865

PATIENT
  Age: 72 Year
  Sex: Female

DRUGS (3)
  1. MIRALAX [Suspect]
     Active Substance: POLYETHYLENE GLYCOL 3350
     Indication: Gastrointestinal disorder
     Dosage: CAPFUL, EVERYDAY
     Route: 048
     Dates: end: 20230129
  2. ZYPREXA [Concomitant]
     Active Substance: OLANZAPINE
  3. BENEFIBER FIBER SUPPLEMENT [Concomitant]

REACTIONS (1)
  - Diarrhoea [Recovered/Resolved]
